FAERS Safety Report 8811139 (Version 3)
Quarter: 2013Q4

REPORT INFORMATION
  Report Type: Report from Study
  Country: US (occurrence: US)
  Receive Date: 20120927
  Receipt Date: 20131030
  Transmission Date: 20140711
  Serious: Yes (Hospitalization, Other)
  Sender: FDA-Public Use
  Company Number: US-NAPPMUNDI-USA-2012-0093545

PATIENT
  Age: 53 Year
  Sex: Female

DRUGS (3)
  1. OXYCONTIN (NDA 22-272) [Suspect]
     Indication: INTERVERTEBRAL DISC DEGENERATION
     Dosage: 120 MG, Q12H
     Route: 048
     Dates: start: 1996
  2. OXYCONTIN (NDA 22-272) [Suspect]
     Indication: FIBROMYALGIA
  3. OXYCONTIN (NDA 22-272) [Suspect]
     Indication: ARTHRITIS

REACTIONS (4)
  - Acute myeloid leukaemia [Not Recovered/Not Resolved]
  - Fungal infection [Unknown]
  - Lung infection [Unknown]
  - Staphylococcal infection [Unknown]
